FAERS Safety Report 5988531 (Version 36)
Quarter: 2013Q3

REPORT INFORMATION
  Report Type: Spontaneous
  Country: US (occurrence: US)
  Receive Date: 20050808
  Receipt Date: 20130904
  Transmission Date: 20140515
  Serious: Yes (Hospitalization, Disabling, Other)
  Sender: FDA-Public Use
  Company Number: US-ROCHE-412370

PATIENT
  Age: 25 Year
  Sex: Female
  Weight: 68 kg

DRUGS (5)
  1. ACCUTANE [Suspect]
     Indication: ACNE
     Route: 048
  2. ACCUTANE [Suspect]
     Route: 048
     Dates: start: 19990714, end: 199909
  3. ACCUTANE [Suspect]
     Route: 048
     Dates: start: 19991115, end: 20000223
  4. IBUPROFEN [Concomitant]
  5. COUMADIN [Concomitant]
     Indication: PULMONARY EMBOLISM
     Dosage: DOSAGE REGIMEN REPORTED AS DAILY.
     Route: 048

REACTIONS (27)
  - Internal injury [Unknown]
  - Gastrointestinal disorder [Unknown]
  - Inflammatory bowel disease [Unknown]
  - Colitis [Unknown]
  - Colitis ulcerative [Unknown]
  - Intestinal haemorrhage [Unknown]
  - Iron deficiency anaemia [Recovered/Resolved]
  - Microcytic anaemia [Recovered/Resolved]
  - Thrombocytosis [Recovered/Resolved]
  - Rectal haemorrhage [Unknown]
  - Pneumonitis [Recovering/Resolving]
  - Pulmonary mass [Recovering/Resolving]
  - Pulmonary embolism [Recovered/Resolved]
  - Small intestinal obstruction [Recovering/Resolving]
  - Peritonitis [Recovering/Resolving]
  - Malnutrition [Unknown]
  - Abdominal compartment syndrome [Recovering/Resolving]
  - Haemorrhagic anaemia [Recovered/Resolved]
  - Pain [Unknown]
  - Abdominal sepsis [Unknown]
  - Interstitial lung disease [Unknown]
  - Depression [Unknown]
  - Gastrointestinal disorder [Unknown]
  - Anal fissure [Unknown]
  - Haemorrhoids [Unknown]
  - Haemorrhoids thrombosed [Unknown]
  - Irritable bowel syndrome [Unknown]
